FAERS Safety Report 6320298-2 (Version None)
Quarter: 2009Q3

REPORT INFORMATION
  Report Type: 
  Country: None (occurrence: None)
  Receive Date: 20090822
  Receipt Date: 20081103
  Transmission Date: 20100115
  Serious: No
  Sender: FDA-Public Use
  Company Number: US-ABBOTT-08P-163-0485284-00

PATIENT
  Sex: Female

DRUGS (6)
  1. NIASPAN [Suspect]
     Indication: CAROTID ARTERY STENOSIS
     Route: 048
     Dates: start: 20081028
  2. PRILOSEC [Concomitant]
     Indication: GASTROOESOPHAGEAL REFLUX DISEASE
     Route: 048
  3. NIFEDIPINE [Concomitant]
     Indication: RAYNAUD'S PHENOMENON
     Route: 048
  4. CRESTOR [Concomitant]
     Indication: BLOOD CHOLESTEROL
     Route: 048
     Dates: start: 20081028
  5. VITRON.C [Concomitant]
     Indication: MINERAL SUPPLEMENTATION
     Route: 048
  6. DOCUSATE SODIUM W/CASANTHANOL (PERI-COLACE) [Concomitant]
     Indication: CONSTIPATION
     Route: 048

REACTIONS (3)
  - ABDOMINAL DISCOMFORT [None]
  - FLUSHING [None]
  - HEADACHE [None]
